FAERS Safety Report 9116662 (Version 1)
Quarter: 2013Q1

REPORT INFORMATION
  Report Type: Spontaneous
  Country: US (occurrence: US)
  Receive Date: 20130225
  Receipt Date: 20130225
  Transmission Date: 20140127
  Serious: Yes (Hospitalization)
  Sender: FDA-Public Use
  Company Number: PHEH2013US003866

PATIENT
  Age: 53 Year
  Sex: Female

DRUGS (1)
  1. GILENYA [Suspect]
     Indication: MULTIPLE SCLEROSIS
     Dosage: 0.5 MG, QD
     Route: 048
     Dates: start: 20130212, end: 20130212

REACTIONS (6)
  - Chest pain [Recovering/Resolving]
  - Vomiting [Recovering/Resolving]
  - Hypersomnia [Recovering/Resolving]
  - Gait disturbance [Recovering/Resolving]
  - Dizziness [Recovered/Resolved]
  - Influenza like illness [Recovering/Resolving]
